FAERS Safety Report 25318622 (Version 4)
Quarter: 2025Q4

REPORT INFORMATION
  Report Type: Spontaneous
  Country: EU (occurrence: EU)
  Receive Date: 20250515
  Receipt Date: 20251001
  Transmission Date: 20260117
  Serious: Yes (Other)
  Sender: TEVA
  Company Number: None

PATIENT
  Age: 75 Year
  Sex: Male
  Weight: 74 kg

DRUGS (4)
  1. PROPRANOLOL [Suspect]
     Active Substance: PROPRANOLOL HYDROCHLORIDE
     Indication: Hyperthyroidism
     Dosage: 20MG MORNING AND EVENING
     Route: 048
     Dates: start: 20250226, end: 20250409
  2. OPDIVO [Suspect]
     Active Substance: NIVOLUMAB
     Indication: Pleural mesothelioma
     Dosage: TIME INTERVAL: CYCLICAL: 360MG ON D1 AND D21, SOLUTION FOR DILUTION FOR INFUSION
     Route: 042
     Dates: start: 20250115, end: 20250319
  3. YERVOY [Suspect]
     Active Substance: IPILIMUMAB
     Indication: Pleural mesothelioma
     Dosage: TIME INTERVAL: CYCLICAL: 75MG ON DAY 1, SOLUTION FOR DILUTION FOR INFUSION
     Route: 042
     Dates: start: 20250115, end: 20250226
  4. CARBIMAZOLE [Suspect]
     Active Substance: CARBIMAZOLE
     Indication: Hyperthyroidism
     Route: 048
     Dates: start: 20250226, end: 20250409

REACTIONS (1)
  - Cholestasis [Recovering/Resolving]

NARRATIVE: CASE EVENT DATE: 20250408
